FAERS Safety Report 16437528 (Version 1)
Quarter: 2019Q2

REPORT INFORMATION
  Report Type: Spontaneous
  Country: DE (occurrence: DE)
  Receive Date: 20190615
  Receipt Date: 20190615
  Transmission Date: 20190711
  Serious: Yes (Other)
  Sender: FDA-Public Use
  Company Number: DE-AUROBINDO-AUR-APL-2019-019225

PATIENT

DRUGS (4)
  1. KISQALI [Suspect]
     Active Substance: RIBOCICLIB
     Indication: BREAST CANCER METASTATIC
     Dosage: 600 MILLIGRAM, ONCE A DAY
     Route: 048
     Dates: start: 20190225, end: 20190313
  2. KISQALI [Suspect]
     Active Substance: RIBOCICLIB
     Dosage: 600 MILLIGRAM, ONCE A DAY
     Route: 048
     Dates: start: 20190401, end: 20190506
  3. KISQALI [Suspect]
     Active Substance: RIBOCICLIB
     Dosage: 400 MILLIGRAM, DAILY
     Route: 048
     Dates: start: 20190513
  4. LETROZOLE. [Suspect]
     Active Substance: LETROZOLE
     Indication: BREAST CANCER METASTATIC
     Dosage: 2.5 MILLIGRAM, ONCE A DAY
     Route: 048
     Dates: start: 20190225

REACTIONS (5)
  - Granulocyte count decreased [Unknown]
  - Pain in extremity [Recovered/Resolved]
  - Polyneuropathy [Not Recovered/Not Resolved]
  - White blood cell count decreased [Unknown]
  - Neutropenia [Recovering/Resolving]

NARRATIVE: CASE EVENT DATE: 20190311
